FAERS Safety Report 7534238-1 (Version None)
Quarter: 2011Q2

REPORT INFORMATION
  Report Type: 
  Country: None (occurrence: None)
  Receive Date: 20110608
  Receipt Date: 20070108
  Transmission Date: 20111010
  Serious: Yes (Death)
  Sender: FDA-Public Use
  Company Number: PHHO2007HU00653

PATIENT
  Sex: Female
  Weight: 51 kg

DRUGS (1)
  1. LETROZOLE [Suspect]

REACTIONS (1)
  - DEATH [None]
